FAERS Safety Report 7804618-5 (Version None)
Quarter: 2011Q4

REPORT INFORMATION
  Report Type: 
  Country: None (occurrence: None)
  Receive Date: 20111010
  Receipt Date: 20111003
  Transmission Date: 20120403
  Serious: Yes (Other)
  Sender: FDA-Public Use
  Company Number: JP-PFIZER INC-2011234801

PATIENT
  Age: 55 Year
  Sex: Female

DRUGS (7)
  1. ENALAPRIL MALEATE [Concomitant]
     Dosage: 5 MG DAILY
     Route: 048
     Dates: start: 20110714
  2. BISOLVON [Concomitant]
     Dosage: 20 MG DAILY
     Route: 048
     Dates: start: 20110714
  3. BISOPROLOL FUMARATE [Concomitant]
     Dosage: 5 MG DAILY
     Route: 048
     Dates: start: 20110714
  4. LIPITOR [Suspect]
     Indication: DYSLIPIDAEMIA
     Dosage: 10 MG, 1X/DAY
     Route: 048
     Dates: start: 20110714, end: 20111001
  5. LANSOPRAZOLE [Concomitant]
     Dosage: 30 MG DAILY
     Route: 048
     Dates: start: 20110714
  6. MEDROL [Concomitant]
     Dosage: 4 MG DAILY
     Route: 048
     Dates: start: 20110714
  7. BIOFERMIN [Concomitant]
     Dosage: 3 MG DAILY
     Route: 048
     Dates: start: 20110714

REACTIONS (9)
  - HEPATIC FUNCTION ABNORMAL [None]
  - ASPARTATE AMINOTRANSFERASE INCREASED [None]
  - ERYTHEMA [None]
  - BLOOD CREATINE PHOSPHOKINASE INCREASED [None]
  - ALANINE AMINOTRANSFERASE INCREASED [None]
  - HYPERTHERMIA MALIGNANT [None]
  - RENAL IMPAIRMENT [None]
  - BLOOD LACTATE DEHYDROGENASE INCREASED [None]
  - TRANSAMINASES INCREASED [None]
